FAERS Safety Report 7425394-4 (Version None)
Quarter: 2011Q2

REPORT INFORMATION
  Report Type: 
  Country: None (occurrence: None)
  Receive Date: 20110420
  Receipt Date: 20110408
  Transmission Date: 20111010
  Serious: Yes (Other)
  Sender: FDA-Public Use
  Company Number: BR-ELI_LILLY_AND_COMPANY-BR201104002358

PATIENT
  Age: 23 Year
  Sex: Female

DRUGS (1)
  1. CYMBALTA [Suspect]
     Indication: NEURALGIA
     Dosage: UNK, UNKNOWN
     Route: 065
     Dates: start: 20110330, end: 20110330

REACTIONS (4)
  - VOMITING [None]
  - LOSS OF CONSCIOUSNESS [None]
  - HYPOTENSION [None]
  - HYPERHIDROSIS [None]
